FAERS Safety Report 4716540-1 (Version None)
Quarter: 2005Q3

REPORT INFORMATION
  Report Type: 
  Country: None (occurrence: None)
  Receive Date: 20050718
  Receipt Date: 20050701
  Transmission Date: 20060218
  Serious: Yes (Other)
  Sender: FDA-Public Use
  Company Number: TRP_0104_2005

PATIENT
  Age: 48 Year
  Sex: Male

DRUGS (8)
  1. RIBASPHERE [Suspect]
     Indication: HEPATITIS C
     Dosage: DF PO
     Route: 048
     Dates: start: 20050104
  2. PEG-INTRON [Suspect]
     Indication: HEPATITIS C
     Dosage: DF SC
     Route: 058
     Dates: start: 20050104
  3. AMBIEN [Concomitant]
  4. AMILORIDE HYDROCHLORIDE [Concomitant]
  5. FUROSEMIDE [Concomitant]
  6. PROPRANOLOL HYDROCHLORIDE [Concomitant]
  7. TYLENOL PM [Concomitant]
  8. TYLENOL PM (ACETAMINOPHEN 500MG/DIPENHYDRAMINE 25 MG) [Concomitant]

REACTIONS (6)
  - AMMONIA INCREASED [None]
  - ANGER [None]
  - CONFUSIONAL STATE [None]
  - ENCEPHALOPATHY [None]
  - HALLUCINATION [None]
  - HYPERSOMNIA [None]
